FAERS Safety Report 17935871 (Version 1)
Quarter: 2020Q2

REPORT INFORMATION
  Report Type: Spontaneous
  Country: IT (occurrence: IT)
  Receive Date: 20200624
  Receipt Date: 20200624
  Transmission Date: 20200714
  Serious: Yes (Hospitalization, Other)
  Sender: FDA-Public Use
  Company Number: IT-SUN PHARMACEUTICAL INDUSTRIES LTD-2020RR-251383

PATIENT
  Age: 87 Year
  Sex: Female

DRUGS (8)
  1. SEROQUEL [Suspect]
     Active Substance: QUETIAPINE FUMARATE
     Indication: PSYCHOTIC DISORDER
     Dosage: 1 DOSAGE FORM, DAILY
     Route: 065
     Dates: start: 20200101, end: 20200514
  2. CLOPIDOGREL 1A PHARMA [Concomitant]
     Indication: PRODUCT USED FOR UNKNOWN INDICATION
     Dosage: UNK
     Route: 065
  3. HALCION [Concomitant]
     Active Substance: TRIAZOLAM
     Indication: PRODUCT USED FOR UNKNOWN INDICATION
     Dosage: UNK
     Route: 065
  4. PLAUNAZIDE [Concomitant]
     Active Substance: HYDROCHLOROTHIAZIDE\OLMESARTAN MEDOXOMIL
     Indication: PRODUCT USED FOR UNKNOWN INDICATION
     Dosage: UNK
     Route: 065
  5. PAROXETINE. [Suspect]
     Active Substance: PAROXETINE
     Indication: PSYCHOTIC DISORDER
     Dosage: 1 DOSAGE FORM, DAILY
     Route: 065
     Dates: start: 20200101, end: 20200514
  6. EN [Suspect]
     Active Substance: DELORAZEPAM
     Indication: PSYCHOTIC DISORDER
     Dosage: 3 GTT DROPS, DAILY
     Route: 048
     Dates: start: 20200101, end: 20200514
  7. SIMVASTATIN. [Concomitant]
     Active Substance: SIMVASTATIN
     Indication: PRODUCT USED FOR UNKNOWN INDICATION
     Dosage: UNK
     Route: 065
  8. TRITTICO 60 MG/ML GOCCE ORALI, SOLUZIONE [Suspect]
     Active Substance: TRAZODONE HYDROCHLORIDE
     Indication: PSYCHOTIC DISORDER
     Dosage: 20 GTT DROPS, DAILY
     Route: 048
     Dates: start: 20200101, end: 20200514

REACTIONS (2)
  - Intestinal obstruction [Unknown]
  - Faecaloma [Unknown]

NARRATIVE: CASE EVENT DATE: 20200514
